FAERS Safety Report 24308478 (Version 3)
Quarter: 2025Q1

REPORT INFORMATION
  Report Type: Spontaneous
  Country: FR (occurrence: FR)
  Receive Date: 20240911
  Receipt Date: 20250203
  Transmission Date: 20250409
  Serious: Yes (Death, Other)
  Sender: NOVARTIS
  Company Number: FR-002147023-NVSC2024FR180531

PATIENT
  Sex: Female

DRUGS (1)
  1. ZOLGENSMA [Suspect]
     Active Substance: ONASEMNOGENE ABEPARVOVEC-XIOI
     Indication: Spinal muscular atrophy
     Route: 065
     Dates: start: 20240718, end: 20240718

REACTIONS (2)
  - Sudden infant death syndrome [Fatal]
  - Viral infection [Unknown]

NARRATIVE: CASE EVENT DATE: 20250101
